FAERS Safety Report 18316289 (Version 2)
Quarter: 2021Q1

REPORT INFORMATION
  Report Type: Spontaneous
  Country: US (occurrence: US)
  Receive Date: 20200927
  Receipt Date: 20210128
  Transmission Date: 20210419
  Serious: No
  Sender: FDA-Public Use
  Company Number: US-LUPIN PHARMACEUTICALS INC.-2020-02898

PATIENT
  Sex: Female

DRUGS (1)
  1. BUPROPION HYDROCHLORIDE EXTENDED?RELEASE TABLETS USP, 150 MG [Suspect]
     Active Substance: BUPROPION HYDROCHLORIDE
     Indication: DEPRESSION
     Dosage: UNK
     Route: 065
     Dates: start: 202004

REACTIONS (2)
  - No adverse event [Unknown]
  - Product dispensing error [Unknown]
